FAERS Safety Report 7202958-4 (Version None)
Quarter: 2010Q4

REPORT INFORMATION
  Report Type: 
  Country: None (occurrence: None)
  Receive Date: 20101229
  Receipt Date: 20101214
  Transmission Date: 20110411
  Serious: Yes (Hospitalization)
  Sender: FDA-Public Use
  Company Number: DE-CELGENEUS-062-20785-10112273

PATIENT
  Age: 86 Year
  Sex: Male
  Weight: 74 kg

DRUGS (8)
  1. THALIDOMIDE [Suspect]
     Indication: PLASMACYTOMA
     Route: 048
     Dates: start: 20100715, end: 20100720
  2. FUROSEMIDE [Concomitant]
     Route: 065
  3. CLOPIDOGREL [Concomitant]
     Route: 065
  4. ASPIRIN [Concomitant]
     Route: 065
  5. CITALOPRAM [Concomitant]
     Route: 065
  6. SIMVASTATIN [Concomitant]
     Route: 065
  7. PANTOPRAZOLE [Concomitant]
     Route: 065
  8. RAMIPRIL [Concomitant]
     Route: 065

REACTIONS (3)
  - CARDIAC DISORDER [None]
  - DYSPNOEA [None]
  - OEDEMA [None]
